FAERS Safety Report 10145570 (Version 1)
Quarter: 2014Q2

REPORT INFORMATION
  Report Type: Spontaneous
  Country: US (occurrence: US)
  Receive Date: 20140501
  Receipt Date: 20140501
  Transmission Date: 20141212
  Serious: Yes (Hospitalization, Congenital Anomaly, Other)
  Sender: FDA-Public Use
  Company Number: US-JNJFOC-20140417360

PATIENT
  Sex: Male

DRUGS (4)
  1. TOPAMAX [Suspect]
     Indication: ATTENTION DEFICIT/HYPERACTIVITY DISORDER
     Dosage: MOTHER^S DOSING
     Route: 064
  2. TOPAMAX [Suspect]
     Indication: DEPRESSION
     Dosage: MOTHER^S DOSING
     Route: 064
  3. PROZAC [Suspect]
     Indication: PRODUCT USED FOR UNKNOWN INDICATION
     Dosage: MOTHER^S DOSING
     Route: 064
  4. WELLBUTRIN [Suspect]
     Indication: PRODUCT USED FOR UNKNOWN INDICATION
     Dosage: MOTHER^S DOSING
     Route: 064

REACTIONS (18)
  - Foetal exposure during pregnancy [Recovered/Resolved]
  - Hypoplastic left heart syndrome [Not Recovered/Not Resolved]
  - Apnoea [Unknown]
  - Convulsion [Not Recovered/Not Resolved]
  - Respiratory distress [Unknown]
  - Haematemesis [Unknown]
  - Attention deficit/hyperactivity disorder [Not Recovered/Not Resolved]
  - Cyanosis [Not Recovered/Not Resolved]
  - Visual impairment [Unknown]
  - Pulmonary pneumatocele [Not Recovered/Not Resolved]
  - Abnormal behaviour [Unknown]
  - Developmental delay [Unknown]
  - Haematocoele [Recovering/Resolving]
  - Mediastinal haematoma [Unknown]
  - Feeding disorder [Unknown]
  - Cardiac murmur [Unknown]
  - Hyperbilirubinaemia [Unknown]
  - Pneumonia [Unknown]
